FAERS Safety Report 14016663 (Version 1)
Quarter: 2017Q3

REPORT INFORMATION
  Report Type: Spontaneous
  Country: US (occurrence: US)
  Receive Date: 20170927
  Receipt Date: 20170927
  Transmission Date: 20171128
  Serious: No
  Sender: FDA-Public Use
  Company Number: US-PFIZER INC-2017367979

PATIENT
  Age: 85 Year
  Sex: Female
  Weight: 53.52 kg

DRUGS (1)
  1. BOSULIF [Suspect]
     Active Substance: BOSUTINIB MONOHYDRATE
     Dosage: 100 MG, UNK, (1 TAB 3 TIMES A WEEK)

REACTIONS (2)
  - Drug dose omission [Unknown]
  - Muscle tightness [Unknown]
